FAERS Safety Report 21908003 (Version 2)
Quarter: 2023Q1

REPORT INFORMATION
  Report Type: Spontaneous
  Country: CN (occurrence: CN)
  Receive Date: 20230125
  Receipt Date: 20230201
  Transmission Date: 20230418
  Serious: Yes (Life-Threatening, Other)
  Sender: FDA-Public Use
  Company Number: CN-PFIZER INC-202300032471

PATIENT
  Sex: Female

DRUGS (5)
  1. PALBOCICLIB [Suspect]
     Active Substance: PALBOCICLIB
     Indication: Metastases to lung
     Dosage: 125MG QD, 3 WEEKS ON/1 WEEK OFF
     Dates: start: 202008
  2. PALBOCICLIB [Suspect]
     Active Substance: PALBOCICLIB
     Indication: Metastases to pleura
     Dosage: 100 MG, 1X/DAY (3 WEEKS ON/1 WEEK OFF) FROM SECOND CYCLE
  3. PALBOCICLIB [Suspect]
     Active Substance: PALBOCICLIB
     Indication: Breast cancer metastatic
  4. LETROZOLE [Concomitant]
     Active Substance: LETROZOLE
     Indication: Metastases to pleura
     Dosage: 2.5 MG, 1X/DAY
     Dates: start: 202008
  5. LETROZOLE [Concomitant]
     Active Substance: LETROZOLE
     Indication: Metastases to lung

REACTIONS (4)
  - Neutropenia [Recovered/Resolved]
  - Delirium [Recovered/Resolved]
  - Tremor [Recovered/Resolved]
  - Delusion [Recovered/Resolved]

NARRATIVE: CASE EVENT DATE: 20200101
